FAERS Safety Report 8145730-3 (Version None)
Quarter: 2012Q1

REPORT INFORMATION
  Report Type: 
  Country: None (occurrence: None)
  Receive Date: 20120217
  Receipt Date: 20110627
  Transmission Date: 20120608
  Serious: No
  Sender: FDA-Public Use
  Company Number: US-ABBOTT-09P-163-0594971-00

PATIENT
  Sex: Male

DRUGS (4)
  1. ASPIRIN [Concomitant]
     Indication: PRODUCT USED FOR UNKNOWN INDICATION
     Dosage: AT HOUR OF SLEEP PRIOR TO SIMCOR
     Route: 048
  2. SIMCOR [Suspect]
     Indication: BLOOD CHOLESTEROL INCREASED
     Dosage: 500/20 MG
  3. SIMCOR [Suspect]
  4. SIMCOR [Suspect]
     Indication: PRODUCT USED FOR UNKNOWN INDICATION
     Dosage: 1000/20 MG ONCE DAILY
     Dates: start: 20090101

REACTIONS (6)
  - FEELING HOT [None]
  - MIDDLE INSOMNIA [None]
  - FACE INJURY [None]
  - FLUSHING [None]
  - ERYTHEMA [None]
  - SWELLING FACE [None]
